FAERS Safety Report 7688863-8 (Version None)
Quarter: 2011Q3

REPORT INFORMATION
  Report Type: 
  Country: None (occurrence: None)
  Receive Date: 20110817
  Receipt Date: 20110803
  Transmission Date: 20111222
  Serious: Yes (Other)
  Sender: FDA-Public Use
  Company Number: PHHY2011BR70788

PATIENT
  Age: 61 Year
  Sex: Male
  Weight: 90 kg

DRUGS (1)
  1. EXFORGE [Suspect]
     Indication: HYPERTENSION
     Dosage: 160 MG VALS AND 5 MG AMLO, 1 TABLET DAILY
     Route: 048
     Dates: start: 20090101

REACTIONS (4)
  - ARTHRALGIA [None]
  - CYST [None]
  - JOINT SWELLING [None]
  - MENISCUS LESION [None]
